FAERS Safety Report 17848827 (Version 2)
Quarter: 2020Q2

REPORT INFORMATION
  Report Type: Spontaneous
  Country: PL (occurrence: PL)
  Receive Date: 20200602
  Receipt Date: 20200608
  Transmission Date: 20200714
  Serious: Yes (Other)
  Sender: FDA-Public Use
  Company Number: NVSC2020PL151105

PATIENT
  Age: 70 Year
  Sex: Female

DRUGS (2)
  1. OCTREOTIDE. [Suspect]
     Active Substance: OCTREOTIDE
     Dosage: 30 MG, QW
     Route: 030
  2. OCTREOTIDE. [Suspect]
     Active Substance: OCTREOTIDE
     Indication: PRODUCT USED FOR UNKNOWN INDICATION
     Dosage: 20 MG, Q4W
     Route: 030

REACTIONS (5)
  - Adenocarcinoma of colon [Unknown]
  - Blood chromogranin A increased [Unknown]
  - Acquired gene mutation [Unknown]
  - Renal impairment [Unknown]
  - Spinal compression fracture [Unknown]
